FAERS Safety Report 5926193-2 (Version None)
Quarter: 2008Q4

REPORT INFORMATION
  Report Type: 
  Country: None (occurrence: None)
  Receive Date: 20081017
  Receipt Date: 20081007
  Transmission Date: 20090506
  Serious: Yes (Other)
  Sender: FDA-Public Use
  Company Number: GXKR2008US09575

PATIENT
  Age: 86 Year
  Sex: Female

DRUGS (5)
  1. HALOPERIDOL [Suspect]
     Indication: AGITATION
     Dosage: 2 MG, INTRAVENOUS
     Route: 042
  2. ACETYLSALICYLIC ACID SRT [Concomitant]
  3. BETA BLOCKING AGENTS (NO INGREDIENTS/SUBSTANCES) [Concomitant]
  4. CLOPIDOGREL [Concomitant]
  5. ENOXAPARIN SODIUM [Concomitant]

REACTIONS (2)
  - ELECTROCARDIOGRAM QT PROLONGED [None]
  - MEDICATION ERROR [None]
